FAERS Safety Report 15452155 (Version 1)
Quarter: 2018Q4

REPORT INFORMATION
  Report Type: Spontaneous
  Country: CA (occurrence: CA)
  Receive Date: 20181001
  Receipt Date: 20181001
  Transmission Date: 20190204
  Serious: Yes (Other)
  Sender: FDA-Public Use
  Company Number: CA-PFIZER INC-2018392036

PATIENT
  Age: 49 Year
  Sex: Female
  Weight: 40 kg

DRUGS (1)
  1. ADVIL [Suspect]
     Active Substance: IBUPROFEN
     Indication: PAIN IN EXTREMITY
     Dosage: 400 MG, 4X/DAY (1 EVERY 6 HOURS)
     Route: 048

REACTIONS (3)
  - Faeces discoloured [Recovered/Resolved]
  - Haemoptysis [Recovered/Resolved]
  - Gastrointestinal haemorrhage [Recovered/Resolved]
